FAERS Safety Report 9736392 (Version 1)
Quarter: 2013Q4

REPORT INFORMATION
  Report Type: Spontaneous
  Country: US (occurrence: US)
  Receive Date: 20131206
  Receipt Date: 20131206
  Transmission Date: 20140711
  Serious: No
  Sender: FDA-Public Use
  Company Number: US-PFIZER INC-2013349904

PATIENT
  Age: 72 Year
  Sex: Male
  Weight: 104.31 kg

DRUGS (1)
  1. NEURONTIN [Suspect]
     Dosage: 300 MG, 3X/DAY
     Route: 048
     Dates: start: 201201, end: 201311

REACTIONS (1)
  - Abdominal discomfort [Unknown]
